FAERS Safety Report 4341316-7 (Version None)
Quarter: 2004Q1

REPORT INFORMATION
  Report Type: 
  Country: None (occurrence: None)
  Receive Date: 20040314
  Receipt Date: 20031119
  Transmission Date: 20041129
  Serious: Yes (Hospitalization)
  Sender: FDA-Public Use
  Company Number: 2003-BP-09790BP (0)

PATIENT
  Age: 82 Year
  Sex: Female

DRUGS (7)
  1. MOBIC [Suspect]
     Dosage: 15 MG (15 MG, QD), PO
     Route: 048
     Dates: start: 20031113, end: 20031119
  2. COUMADIN [Suspect]
     Dosage: 3 MG (NR, QD) NR
     Dates: start: 19980101
  3. NEURONTIN [Concomitant]
  4. HYDROCODONE BITARTRATE AND ACETAMINOPHEN [Concomitant]
  5. PLAVIX [Concomitant]
  6. PRAVACHOL [Concomitant]
  7. NORVASC [Concomitant]

REACTIONS (1)
  - GASTROINTESTINAL HAEMORRHAGE [None]
